APPROVED DRUG PRODUCT: CYCLOSPORINE
Active Ingredient: CYCLOSPORINE
Strength: 0.05%
Dosage Form/Route: EMULSION;OPHTHALMIC
Application: A209064 | Product #001 | TE Code: AB
Applicant: TWI PHARMACEUTICALS INC
Approved: Jan 21, 2026 | RLD: No | RS: No | Type: RX